FAERS Safety Report 20161869 (Version 1)
Quarter: 2021Q4

REPORT INFORMATION
  Report Type: Spontaneous
  Country: US (occurrence: None)
  Receive Date: 20211208
  Receipt Date: 20211208
  Transmission Date: 20220303
  Serious: Yes (Death, Hospitalization)
  Sender: FDA-Public Use
  Company Number: None

PATIENT
  Sex: Female
  Weight: 74.8 kg

DRUGS (1)
  1. PEMBROLIZUMAB [Suspect]
     Active Substance: PEMBROLIZUMAB

REACTIONS (9)
  - Chest pain [None]
  - Abdominal pain [None]
  - Rib fracture [None]
  - Liver disorder [None]
  - Acute kidney injury [None]
  - Dialysis [None]
  - Sepsis [None]
  - Cholecystitis acute [None]
  - Cardiac arrest [None]

NARRATIVE: CASE EVENT DATE: 20211121
